FAERS Safety Report 18233396 (Version 2)
Quarter: 2020Q3

REPORT INFORMATION
  Report Type: Spontaneous
  Country: CA (occurrence: CA)
  Receive Date: 20200904
  Receipt Date: 20200925
  Transmission Date: 20201103
  Serious: Yes (Death, Hospitalization, Other)
  Sender: FDA-Public Use
  Company Number: CA-PFIZER INC-2019072847

PATIENT
  Age: 64 Year
  Sex: Female

DRUGS (9)
  1. FASLODEX [Concomitant]
     Active Substance: FULVESTRANT
     Dosage: 50 MG/ML
  2. FUROSEMIDE. [Concomitant]
     Active Substance: FUROSEMIDE
     Dosage: 40 MG, DAILY
  3. RANITIDINE. [Concomitant]
     Active Substance: RANITIDINE
     Dosage: 150 MG, 2X/DAY
  4. FULVESTRANT. [Concomitant]
     Active Substance: FULVESTRANT
     Dosage: UNK
  5. HYDROMORPHONE [Concomitant]
     Active Substance: HYDROMORPHONE
     Dosage: 1 MG, AT BEDTIME, EVERY 4 HRS, AS NEEDED
  6. XARELTO [Concomitant]
     Active Substance: RIVAROXABAN
     Dosage: 150 MG, 2X/DAY
  7. CAPECITABINE. [Concomitant]
     Active Substance: CAPECITABINE
     Dosage: 1500 MG, 2X/DAY (14 DAYS, STOP FOR 7 DAYS)
  8. POTASSIUM [Concomitant]
     Active Substance: POTASSIUM
     Dosage: 600 MG, DAILY
  9. IBRANCE [Suspect]
     Active Substance: PALBOCICLIB
     Indication: BREAST CANCER METASTATIC
     Dosage: 125 MG, CYCLIC (21 DAYS ON, 7 DAYS OFF, FOR 1 MONTH)
     Route: 048
     Dates: start: 20190216, end: 2019

REACTIONS (7)
  - Platelet count decreased [Unknown]
  - Neutrophil count decreased [Unknown]
  - Poor venous access [Unknown]
  - Cellulitis [Recovering/Resolving]
  - Neoplasm progression [Fatal]
  - Haemoglobin decreased [Unknown]
  - Full blood count decreased [Not Recovered/Not Resolved]

NARRATIVE: CASE EVENT DATE: 20200823
